FAERS Safety Report 21806348 (Version 2)
Quarter: 2024Q1

REPORT INFORMATION
  Report Type: Spontaneous
  Country: GB (occurrence: GB)
  Receive Date: 20230102
  Receipt Date: 20240216
  Transmission Date: 20240410
  Serious: Yes (Hospitalization, Other)
  Sender: FDA-Public Use
  Company Number: None

PATIENT
  Age: 49 Year
  Sex: Male

DRUGS (65)
  1. DOXORUBICIN [Suspect]
     Active Substance: DOXORUBICIN
     Indication: B-cell lymphoma
     Dosage: DOSAGE TEXT: DOSE:1, CYCLE/ RCHOP CHEMO - DOSE AND EXACT ROUTE NOT KNOWN CYCLIC (6 CYCLE, RCHOP C...
     Route: 065
     Dates: end: 20220512
  2. DOXORUBICIN [Suspect]
     Active Substance: DOXORUBICIN
     Indication: B-cell lymphoma
     Dosage: DOSAGE TEXT: RCHOP CHEMO
     Route: 065
     Dates: end: 20220512
  3. DOXORUBICIN [Suspect]
     Active Substance: DOXORUBICIN
     Indication: B-cell lymphoma
     Dosage: DOSAGE TEXT: UNK, CYCLIC (6 CYCLE, RCHOP CHEMO - DOSE)
     Route: 065
     Dates: end: 20220512
  4. DOXORUBICIN [Suspect]
     Active Substance: DOXORUBICIN
     Indication: B-cell lymphoma
     Dosage: DOSAGE TEXT: UNK
     Route: 065
     Dates: end: 20220512
  5. DOXORUBICIN [Suspect]
     Active Substance: DOXORUBICIN
     Indication: B-cell lymphoma
     Dosage: DOSAGE TEXT: RCHOP CHEMO - DOSE AND EXACT ROUTE NOT KNOWN.
     Route: 065
     Dates: end: 20220512
  6. DOXORUBICIN [Suspect]
     Active Substance: DOXORUBICIN
     Indication: B-cell lymphoma
     Dosage: DOSAGE TEXT: RCHOP CHEMO
     Route: 065
     Dates: end: 20220512
  7. DOXORUBICIN [Suspect]
     Active Substance: DOXORUBICIN
     Indication: B-cell lymphoma
     Dosage: DOSAGE TEXT: UNK UNK, CYCLIC
     Route: 065
     Dates: end: 20220512
  8. DOXORUBICIN [Suspect]
     Active Substance: DOXORUBICIN
     Indication: B-cell lymphoma
     Dosage: DOSAGE TEXT: UNK, CYCLIC (6 CYCLE RCHOP CHEMO- DOSE AND ROUTE UNKNOWN 12-MAY-2022.)
     Route: 065
     Dates: end: 20220512
  9. DOXORUBICIN [Suspect]
     Active Substance: DOXORUBICIN
     Indication: B-cell lymphoma
     Dosage: DOSAGE TEXT: UNK, CYCLIC (6 CYCLE, RCHOP CHEMO - DOSE), RCHOP CHEMO - DOSE AND EXACT ROUTE NOT KNOWN
     Route: 065
     Dates: end: 20220512
  10. DOXORUBICIN [Suspect]
     Active Substance: DOXORUBICIN
     Indication: B-cell lymphoma
     Dosage: DOSAGE TEXT: UNK, CYCLIC (6 CYCLE, RCHOP CHEMO - DOSE) DOSAGE FORM: INJECTION
     Route: 065
  11. DOXORUBICIN [Suspect]
     Active Substance: DOXORUBICIN
     Indication: B-cell lymphoma
     Dosage: DOSAGE TEXT: UNK UNK, CYCLIC (6 CYCLE RCHOP CHEMO- DOSE AND ROUTE UNKNOWN 12-MAY-2022.)
     Route: 065
     Dates: end: 20220512
  12. DOXORUBICIN [Suspect]
     Active Substance: DOXORUBICIN
     Indication: B-cell lymphoma
     Dosage: DOSAGE TEXT: MOST RECENT DOSE ON 12-MAY-2022
     Route: 065
     Dates: end: 20220512
  13. DOXORUBICIN [Suspect]
     Active Substance: DOXORUBICIN
     Indication: B-cell lymphoma
     Dosage: DOSAGE TEXT: UNK, CYCLIC (6 CYCLE, RCHOP CHEMO - DOSE) DOSAGE FORM: INJECTION
     Route: 065
     Dates: end: 20220512
  14. DOXORUBICIN [Suspect]
     Active Substance: DOXORUBICIN
     Indication: B-cell lymphoma
     Dosage: DOSAGE TEXT: UNK, CYCLIC (6 CYCLE, RCHOP CHEMO - DOSE)
     Route: 065
     Dates: end: 20220512
  15. DOXORUBICIN [Suspect]
     Active Substance: DOXORUBICIN
     Indication: B-cell lymphoma
     Dosage: DOSAGE TEXT: UNK (RCHOP CHEMO - DOSE AND EXACT ROUTE NOT KNOWN)
     Route: 065
     Dates: end: 20220512
  16. CYCLOPHOSPHAMIDE [Suspect]
     Active Substance: CYCLOPHOSPHAMIDE
     Indication: B-cell lymphoma
     Dosage: DOSAGE TEXT: RCHOP CHEMO, MOST RECENT DOSE ON 12-MAY-2022
     Route: 065
  17. CYCLOPHOSPHAMIDE [Suspect]
     Active Substance: CYCLOPHOSPHAMIDE
     Indication: B-cell lymphoma
     Dosage: DOSAGE TEXT: RCHOP CHEMO - DOSE AND EXACT ROUTE NOT KNOWN.
     Route: 065
     Dates: end: 20220512
  18. CYCLOPHOSPHAMIDE [Suspect]
     Active Substance: CYCLOPHOSPHAMIDE
     Indication: B-cell lymphoma
     Dosage: DOSAGE TEXT: UNK, CYCLIC (6 CYCLE, RCHOP CHEMO - DOSE
     Route: 065
     Dates: end: 20220512
  19. CYCLOPHOSPHAMIDE [Suspect]
     Active Substance: CYCLOPHOSPHAMIDE
     Indication: B-cell lymphoma
     Dosage: DOSAGE TEXT: RCHOP CHEMO
     Route: 065
     Dates: end: 20220512
  20. CYCLOPHOSPHAMIDE [Suspect]
     Active Substance: CYCLOPHOSPHAMIDE
     Indication: B-cell lymphoma
     Dosage: DOSAGE TEXT: UNK, CYCLIC (6 CYCLE, RCHOP CHEMO - DOSE
     Route: 065
     Dates: end: 20220512
  21. CYCLOPHOSPHAMIDE [Suspect]
     Active Substance: CYCLOPHOSPHAMIDE
     Indication: B-cell lymphoma
     Dosage: DOSAGE TEXT: UNK (RCHOP CHEMO - DOSE AND EXACT ROUTE NOT KNOWN)
     Route: 065
     Dates: end: 20220512
  22. CYCLOPHOSPHAMIDE [Suspect]
     Active Substance: CYCLOPHOSPHAMIDE
     Indication: B-cell lymphoma
     Dosage: DOSAGE TEXT: CYCLIC (RCHOP CHEMO - DOSE AND EXACT ROUTE NOT KNOWN CYCLIC (6 CYCLE, RCHOP CHEMO - ...
     Route: 065
     Dates: end: 20220512
  23. CYCLOPHOSPHAMIDE [Suspect]
     Active Substance: CYCLOPHOSPHAMIDE
     Indication: B-cell lymphoma
     Dosage: DOSAGE TEXT: DOSE 1, CYCLE/RCHOP CHEMO - DOSE AND EXACT ROUTE NOT KNOWN CYCLIC (6 CYCLE, RCHOP CH...
     Route: 065
     Dates: end: 20220512
  24. CYCLOPHOSPHAMIDE [Suspect]
     Active Substance: CYCLOPHOSPHAMIDE
     Indication: B-cell lymphoma
     Dosage: DOSAGE TEXT: RCHOP CHEMO
     Route: 065
     Dates: end: 20220512
  25. CYCLOPHOSPHAMIDE [Suspect]
     Active Substance: CYCLOPHOSPHAMIDE
     Indication: B-cell lymphoma
     Dosage: DOSAGE TEXT: UNK, CYCLIC (6 CYCLE, RCHOP CHEMO - DOSE)
     Route: 065
     Dates: end: 20220512
  26. CYCLOPHOSPHAMIDE [Suspect]
     Active Substance: CYCLOPHOSPHAMIDE
     Indication: B-cell lymphoma
     Dosage: DOSAGE TEXT: UNK
     Route: 065
     Dates: end: 20220512
  27. CYCLOPHOSPHAMIDE [Suspect]
     Active Substance: CYCLOPHOSPHAMIDE
     Indication: B-cell lymphoma
     Dosage: DOSAGE TEXT: CYCLIC (RCHOP CHEMO - DOSE AND EXACT ROUTE NOT KNOWN, CYCLIC (6 CYCLE, RCHOP CHEMO -...
     Route: 065
     Dates: end: 20220512
  28. CYCLOPHOSPHAMIDE [Suspect]
     Active Substance: CYCLOPHOSPHAMIDE
     Indication: B-cell lymphoma
     Dosage: DOSAGE TEXT: UNK, CYCLIC (6 CYCLE, RCHOP CHEMO - DOSE)
     Route: 065
     Dates: end: 20220512
  29. PREDNISOLONE [Suspect]
     Active Substance: PREDNISOLONE
     Indication: B-cell lymphoma
     Dosage: DOSAGE TEXT: RCHOP CHEMO - DOSE AND EXACT ROUTE NOT KNOWN., GASTRO RESISTANT
     Route: 065
     Dates: end: 20220512
  30. PREDNISOLONE [Suspect]
     Active Substance: PREDNISOLONE
     Indication: B-cell lymphoma
     Dosage: DOSAGE TEXT: UNK, CYCLIC (6 CYCLE, RCHOP CHEMO - DOSE, GASTRO RESISTANT)
     Route: 065
     Dates: end: 20220512
  31. PREDNISOLONE [Suspect]
     Active Substance: PREDNISOLONE
     Indication: B-cell lymphoma
     Dosage: DOSAGE TEXT: RCHOP CHEMO - DOSE AND EXACT ROUTE NOT KNOWN, CYCLIC (6 CYCLE, RCHOP CHEMO - DOSE, G...
     Route: 065
     Dates: end: 20220512
  32. PREDNISOLONE [Suspect]
     Active Substance: PREDNISOLONE
     Indication: B-cell lymphoma
     Dosage: DOSAGE TEXT: RCHOP CHEMO - DOSE AND EXACT ROUTE NOT KNOWN, CYCLIC (6 CYCLE, RCHOP CHEMO - DOSE, G...
     Route: 065
     Dates: end: 20220512
  33. PREDNISOLONE [Suspect]
     Active Substance: PREDNISOLONE
     Indication: B-cell lymphoma
     Dosage: DOSAGE TEXT: UNK, CYCLIC (6 CYCLE, RCHOP CHEMO - DOSE, GASTRO RESISTANT)
     Route: 065
     Dates: end: 20220512
  34. PREDNISOLONE [Suspect]
     Active Substance: PREDNISOLONE
     Indication: B-cell lymphoma
     Dosage: DOSAGE TEXT: DOSE:1, CYCLE/ RCHOP CHEMO - DOSE AND EXACT ROUTE NOT KNOWN CYCLIC (6 CYCLE, RCHOP C...
     Route: 065
     Dates: end: 20220512
  35. PREDNISOLONE [Suspect]
     Active Substance: PREDNISOLONE
     Indication: B-cell lymphoma
     Dosage: DOSAGE TEXT: UNK, CYCLIC (6 CYCLE, RCHOP CHEMO - DOSE, GASTRO RESISTANT
     Route: 065
     Dates: end: 20220512
  36. PREDNISOLONE [Suspect]
     Active Substance: PREDNISOLONE
     Indication: B-cell lymphoma
     Dosage: DOSAGE TEXT: RCHOP CHEMO
     Route: 065
     Dates: end: 20220512
  37. PREDNISOLONE [Suspect]
     Active Substance: PREDNISOLONE
     Indication: B-cell lymphoma
     Dosage: DOSAGE TEXT: UNK (RCHOP CHEMO - DOSE AND EXACT ROUTE NOT KNOWN.)
     Route: 065
     Dates: end: 20220512
  38. PREDNISOLONE [Suspect]
     Active Substance: PREDNISOLONE
     Indication: B-cell lymphoma
     Dosage: DOSAGE TEXT: UNK, CYCLIC (6 CYCLE, RCHOP CHEMO - DOSE, GASTRO RESISTANT)
     Route: 065
     Dates: end: 20220512
  39. PREDNISOLONE [Suspect]
     Active Substance: PREDNISOLONE
     Indication: B-cell lymphoma
     Dosage: DOSAGE TEXT: RCHOP CHEMO - DOSE AND EXACT ROUTE NOT KNOWN.
     Route: 042
     Dates: end: 20220512
  40. PREDNISOLONE [Suspect]
     Active Substance: PREDNISOLONE
     Indication: B-cell lymphoma
     Dosage: DOSAGE TEXT: RCHOP CHEMO, MOST RECENT DOSE ON 12-MAY-2022
     Route: 065
     Dates: end: 20220512
  41. RITUXIMAB [Suspect]
     Active Substance: RITUXIMAB
     Indication: B-cell lymphoma
     Dosage: DOSAGE TEXT: UNK (RCHOP CHEMO)
     Route: 065
     Dates: end: 20220512
  42. RITUXIMAB [Suspect]
     Active Substance: RITUXIMAB
     Indication: B-cell lymphoma
     Dosage: DOSAGE TEXT: UNK (CYCLIC (6 CYCLE, RCHOP CHEMO - DOSE)
     Route: 041
     Dates: end: 20220512
  43. RITUXIMAB [Suspect]
     Active Substance: RITUXIMAB
     Indication: B-cell lymphoma
     Dosage: DOSAGE TEXT: RCHOP CHEMO - DOSE AND EXACT ROUTE NOT KNOWN.
     Route: 065
     Dates: end: 20220512
  44. RITUXIMAB [Suspect]
     Active Substance: RITUXIMAB
     Indication: B-cell lymphoma
     Dosage: DOSAGE TEXT: UNK (RCHOP CHEMO - DOSE AND EXACT ROUTE NOT KNOWN.)
     Route: 065
     Dates: end: 20220512
  45. RITUXIMAB [Suspect]
     Active Substance: RITUXIMAB
     Indication: B-cell lymphoma
     Dosage: DOSAGE TEXT: UNK
     Route: 065
     Dates: end: 20220512
  46. RITUXIMAB [Suspect]
     Active Substance: RITUXIMAB
     Indication: B-cell lymphoma
     Dosage: DOSAGE TEXT: UNK
     Route: 065
     Dates: end: 20220512
  47. RITUXIMAB [Suspect]
     Active Substance: RITUXIMAB
     Indication: B-cell lymphoma
     Dosage: DOSAGE TEXT: DOSE:1, CYCLE /RCHOP CHEMO - DOSE AND EXACT ROUTE NOT KNOWN. UNK, CYCLIC (6 CYCLE, R...
     Route: 042
     Dates: end: 20220512
  48. RITUXIMAB [Suspect]
     Active Substance: RITUXIMAB
     Indication: B-cell lymphoma
     Dosage: DOSAGE TEXT: RCHOP CHEMO - DOSE AND EXACT ROUTE NOT KNOWN.
     Route: 042
     Dates: end: 20220512
  49. RITUXIMAB [Suspect]
     Active Substance: RITUXIMAB
     Indication: B-cell lymphoma
     Dosage: DOSAGE TEXT: MOST RECENT DOSE ON 12-MAY-2022
     Route: 065
     Dates: end: 20220512
  50. RITUXIMAB [Suspect]
     Active Substance: RITUXIMAB
     Indication: B-cell lymphoma
     Dosage: DOSAGE TEXT: RITUXIMAB
     Route: 065
     Dates: end: 20220512
  51. RITUXIMAB [Suspect]
     Active Substance: RITUXIMAB
     Indication: B-cell lymphoma
     Dosage: DOSAGE TEXT: UNK, CYCLIC (6 CYCLE, RCHOP CHEMO - DOSE)
     Route: 065
     Dates: end: 20220512
  52. RITUXIMAB [Suspect]
     Active Substance: RITUXIMAB
     Indication: B-cell lymphoma
     Dosage: DOSAGE TEXT: CYCLIC (RCHOP CHEMO - DOSE AND EXACT ROUTE NOT KNOWN. UNK, CYCLIC (6 CYCLE, RCHOP CH...
     Route: 042
     Dates: end: 20220512
  53. VINCRISTINE [Suspect]
     Active Substance: VINCRISTINE
     Indication: B-cell lymphoma
     Dosage: DOSAGE TEXT: RCHOP CHEMO
     Route: 065
     Dates: end: 20220512
  54. VINCRISTINE [Suspect]
     Active Substance: VINCRISTINE
     Indication: B-cell lymphoma
     Dosage: DOSAGE TEXT: CYCLIC (6 CYCLE, RCHOP CHEMO - DOSE, GASTRO RESISTANT)
     Route: 065
     Dates: end: 20220512
  55. VINCRISTINE [Suspect]
     Active Substance: VINCRISTINE
     Indication: B-cell lymphoma
     Dosage: DOSAGE TEXT: UNK, CYCLIC (6 CYCLE, RCHOP CHEMO - DOSE, GASTRO RESISTANT)
     Route: 065
     Dates: end: 20220512
  56. VINCRISTINE [Suspect]
     Active Substance: VINCRISTINE
     Indication: B-cell lymphoma
     Dosage: DOSAGE TEXT: UNK (RCHOP CHEMO - DOSE AND EXACT ROUTE NOT KNOWN.)
     Route: 065
     Dates: end: 20220512
  57. VINCRISTINE [Suspect]
     Active Substance: VINCRISTINE
     Indication: B-cell lymphoma
     Dosage: DOSAGE TEXT: RCHOP CHEMO - DOSE AND EXACT ROUTE NOT KNOWN.CYCLIC (6 CYCLE, RCHOP CHEMO - DOSE, GA...
     Route: 065
     Dates: end: 20220512
  58. VINCRISTINE [Suspect]
     Active Substance: VINCRISTINE
     Indication: B-cell lymphoma
     Dosage: DOSAGE TEXT: RCHOP CHEMO
     Route: 065
     Dates: end: 20220512
  59. VINCRISTINE [Suspect]
     Active Substance: VINCRISTINE
     Indication: B-cell lymphoma
     Dosage: DOSAGE TEXT: UNK (RCHOP CHEMO - DOSE AND EXACT ROUTE NOT KNOWN. CYCLIC (6 CYCLE, RCHOP CHEMO - DO...
     Route: 065
     Dates: end: 20220512
  60. VINCRISTINE [Suspect]
     Active Substance: VINCRISTINE
     Indication: B-cell lymphoma
     Dosage: DOSAGE TEXT: DOSE:1, CYCLE/ RCHOP CHEMO - DOSE AND EXACT ROUTE NOT KNOWN CYCLIC (6 CYCLE, RCHOP C...
     Route: 065
     Dates: end: 20220512
  61. VINCRISTINE [Suspect]
     Active Substance: VINCRISTINE
     Indication: B-cell lymphoma
     Dosage: DOSAGE TEXT: RCHOP CHEMO, MOST RECENT DOSE ON 12-MAY-2022
     Route: 065
     Dates: end: 20220512
  62. VINCRISTINE [Suspect]
     Active Substance: VINCRISTINE
     Indication: B-cell lymphoma
     Dosage: DOSAGE TEXT: UNK, CYCLIC (6 CYCLE, RCHOP CHEMO - DOSE, GASTRO RESISTANT)
     Route: 065
     Dates: end: 20220512
  63. VINCRISTINE [Suspect]
     Active Substance: VINCRISTINE
     Indication: B-cell lymphoma
     Dosage: DOSAGE TEXT: RCHOP CHEMO - DOSE AND EXACT ROUTE NOT KNOWN.
     Route: 065
     Dates: end: 20220512
  64. VINCRISTINE [Suspect]
     Active Substance: VINCRISTINE
     Indication: B-cell lymphoma
     Dosage: DOSAGE TEXT: UNK, CYCLIC (6 CYCLE, RCHOP CHEMO - DOSE, GASTRO RESISTANT
     Route: 065
     Dates: end: 20220512
  65. VINCRISTINE [Suspect]
     Active Substance: VINCRISTINE
     Indication: B-cell lymphoma
     Dosage: DOSAGE TEXT: UNK, CYCLIC (6 CYCLE, RCHOP CHEMO - DOSE, GASTRO RESISTANT
     Route: 065
     Dates: end: 20220512

REACTIONS (10)
  - Back pain [Unknown]
  - Dysarthria [Unknown]
  - Balance disorder [Unknown]
  - Cerebellar syndrome [Unknown]
  - Confusional state [Unknown]
  - Disease progression [Unknown]
  - Abnormal behaviour [Unknown]
  - Off label use [Unknown]
  - Lethargy [Unknown]
  - Condition aggravated [Unknown]

NARRATIVE: CASE EVENT DATE: 20220514
